APPROVED DRUG PRODUCT: PREGABALIN
Active Ingredient: PREGABALIN
Strength: 25MG
Dosage Form/Route: CAPSULE;ORAL
Application: A206912 | Product #001 | TE Code: AB
Applicant: HETERO LABS LTD UNIT III
Approved: Oct 8, 2019 | RLD: No | RS: No | Type: RX